FAERS Safety Report 22538181 (Version 1)
Quarter: 2023Q2

REPORT INFORMATION
  Report Type: Report from Study
  Country: US (occurrence: US)
  Receive Date: 20230608
  Receipt Date: 20230608
  Transmission Date: 20230721
  Serious: No
  Sender: FDA-Public Use
  Company Number: US-ACADIA PHARMACEUTICALS INC.-ACA-2023-PIM-001852

PATIENT
  Age: 66 Year
  Sex: Male

DRUGS (11)
  1. NUPLAZID [Suspect]
     Active Substance: PIMAVANSERIN TARTRATE
     Indication: Parkinson^s disease
     Dosage: 34 MILLIGRAM, QD
     Route: 048
     Dates: start: 202208, end: 202304
  2. B COMPLEX [VITAMIN B NOS] [Concomitant]
  3. DESVENLAFAXINE [Concomitant]
     Active Substance: DESVENLAFAXINE
  4. GLUCOSAMINE/CHONDROITIN [CHONDROITIN SULFATE SODIUM;GLUCOSAMINE HYDROC [Concomitant]
  5. LISINOPRIL [Concomitant]
     Active Substance: LISINOPRIL
  6. LORAZEPAM [Concomitant]
     Active Substance: LORAZEPAM
  7. VITAMINS NOS [Concomitant]
     Active Substance: VITAMINS
  8. OCUVITE [ASCORBIC ACID;RETINOL;TOCOPHEROL] [Concomitant]
  9. XADAGO [Concomitant]
     Active Substance: SAFINAMIDE MESYLATE
  10. ADVIL [Concomitant]
     Active Substance: IBUPROFEN
  11. LORATADINE [Concomitant]
     Active Substance: LORATADINE

REACTIONS (1)
  - Drug ineffective [Recovered/Resolved]

NARRATIVE: CASE EVENT DATE: 20230401
